FAERS Safety Report 4533047-5 (Version None)
Quarter: 2004Q4

REPORT INFORMATION
  Report Type: 
  Country: None (occurrence: None)
  Receive Date: 20041206
  Receipt Date: 20041020
  Transmission Date: 20050328
  Serious: No
  Sender: FDA-Public Use
  Company Number: USA041081735

PATIENT
  Age: 41 Year
  Sex: Male
  Weight: 95 kg

DRUGS (4)
  1. CYMBALTA [Suspect]
     Dosage: 30 MG/1 DAY
     Dates: start: 20041018
  2. OXYCONTIN [Concomitant]
  3. ZOCOR (SIMVASTATIN RATIOPHARM) [Concomitant]
  4. ASPIRIN [Concomitant]

REACTIONS (5)
  - EYE PAIN [None]
  - HEADACHE [None]
  - LACRIMATION INCREASED [None]
  - PHOTOPHOBIA [None]
  - VISION BLURRED [None]
